FAERS Safety Report 6611543-4 (Version None)
Quarter: 2010Q1

REPORT INFORMATION
  Report Type: 
  Country: None (occurrence: None)
  Receive Date: 20100303
  Receipt Date: 20100225
  Transmission Date: 20100710
  Serious: Yes (Death, Other)
  Sender: FDA-Public Use
  Company Number: PHHY2010US10691

PATIENT
  Sex: Male
  Weight: 69 kg

DRUGS (2)
  1. EXJADE [Suspect]
     Indication: LYMPHATIC DISORDER
     Dosage: 500 MG, QD
     Route: 048
     Dates: start: 20080101
  2. EXJADE [Suspect]
     Indication: IRON OVERLOAD

REACTIONS (5)
  - CACHEXIA [None]
  - CARDIAC FAILURE [None]
  - DEATH [None]
  - FATIGUE [None]
  - PERFORMANCE STATUS DECREASED [None]
